FAERS Safety Report 7796495-6 (Version None)
Quarter: 2011Q4

REPORT INFORMATION
  Report Type: 
  Country: None (occurrence: None)
  Receive Date: 20111005
  Receipt Date: 20110923
  Transmission Date: 20120403
  Serious: Yes (Other)
  Sender: FDA-Public Use
  Company Number: TR-RANBAXY-2011RR-47128

PATIENT
  Age: 10 Year
  Sex: Female

DRUGS (1)
  1. FLUOXETINE [Suspect]
     Indication: OBSESSIVE-COMPULSIVE DISORDER
     Dosage: 10 MG/DAY
     Route: 065

REACTIONS (1)
  - TIC [None]
